FAERS Safety Report 5864024-X (Version None)
Quarter: 2008Q3

REPORT INFORMATION
  Report Type: 
  Country: None (occurrence: None)
  Receive Date: 20080829
  Receipt Date: 20080822
  Transmission Date: 20090109
  Serious: Yes (Hospitalization)
  Sender: FDA-Public Use
  Company Number: JP-NOVOPROD-278885

PATIENT
  Age: 58 Year
  Sex: Male

DRUGS (6)
  1. NOVORAPID CHU FLEXPEN [Suspect]
     Indication: TYPE 2 DIABETES MELLITUS
     Route: 058
  2. NOVOLIN N [Suspect]
     Indication: TYPE 2 DIABETES MELLITUS
     Route: 058
  3. ASCATE [Concomitant]
     Dosage: 1 TAB, QD
     Route: 048
  4. ASPIRIN [Concomitant]
     Dosage: 1 TAB, QD
     Route: 048
  5. MICARDIS [Concomitant]
     Dosage: 2 TAB, QD
     Route: 048
  6. MYSLEE [Concomitant]
     Dosage: 1 TAB, QD
     Route: 048

REACTIONS (1)
  - GAIT DISTURBANCE [None]
